FAERS Safety Report 8968995 (Version 1)
Quarter: 2012Q4

REPORT INFORMATION
  Report Type: 
  Country: FR (occurrence: FR)
  Receive Date: 20121218
  Receipt Date: 20121218
  Transmission Date: 20130627
  Serious: Yes (Hospitalization)
  Sender: FDA-Public Use
  Company Number: FR-009507513-1107USA01364

PATIENT
  Sex: Female

DRUGS (14)
  1. JANUVIA [Suspect]
     Indication: TYPE 2 DIABETES MELLITUS
     Dosage: 100 mg, qd
     Route: 048
  2. LANTUS [Suspect]
     Dosage: 18-22
     Route: 058
     Dates: end: 20110408
  3. LANTUS [Suspect]
     Dosage: 9 U, qd
     Route: 058
  4. NOVO-NORM [Suspect]
     Dosage: 2 mg, UNK
     Route: 048
     Dates: end: 20110408
  5. NOVO-NORM [Suspect]
     Dosage: 0.5 mg, hs
     Route: 048
     Dates: end: 20110408
  6. NOVO-NORM [Suspect]
     Dosage: 2 mg, UNK
     Route: 048
     Dates: end: 20110408
  7. NOVO-NORM [Suspect]
     Dosage: 4 mg, UNK
     Route: 048
  8. NOVO-NORM [Suspect]
     Dosage: 4 mg, UNK
     Route: 048
  9. NOVO-NORM [Suspect]
     Dosage: 1-2
     Route: 048
  10. DETENSIEL [Concomitant]
     Dosage: UNK mg, UNK
  11. NISISCO [Concomitant]
     Dosage: 80-12.5
  12. ZANIDIP [Concomitant]
     Dosage: 1 DF, qd
  13. EXELON (RIVASTIGMINE) [Concomitant]
     Dosage: 24 mg/24h
  14. MODOPAR [Concomitant]
     Dosage: 62.5 mg, qd

REACTIONS (2)
  - Malaise [Recovered/Resolved]
  - Hypoglycaemia [None]
